FAERS Safety Report 15059205 (Version 1)
Quarter: 2018Q2

REPORT INFORMATION
  Report Type: Spontaneous
  Country: US (occurrence: US)
  Receive Date: 20180625
  Receipt Date: 20180625
  Transmission Date: 20180711
  Serious: Yes (Other)
  Sender: FDA-Public Use
  Company Number: US-ABBVIE-18P-163-2394782-00

PATIENT
  Age: 25 Year
  Sex: Male
  Weight: 157 kg

DRUGS (3)
  1. TESTOSTERONE. [Concomitant]
     Active Substance: TESTOSTERONE
     Indication: PRODUCT USED FOR UNKNOWN INDICATION
  2. LUPRON DEPOT-PED [Suspect]
     Active Substance: LEUPROLIDE ACETATE
     Indication: HORMONE SUPPRESSION THERAPY
     Route: 030
     Dates: start: 20170622
  3. LUPRON DEPOT-PED [Suspect]
     Active Substance: LEUPROLIDE ACETATE
     Route: 030
     Dates: start: 201802, end: 201802

REACTIONS (2)
  - Abscess sterile [Recovered/Resolved]
  - Abscess sterile [Recovered/Resolved]

NARRATIVE: CASE EVENT DATE: 20180213
